FAERS Safety Report 13741651 (Version 3)
Quarter: 2017Q3

REPORT INFORMATION
  Report Type: Spontaneous
  Country: BR (occurrence: BR)
  Receive Date: 20170711
  Receipt Date: 20170816
  Transmission Date: 20171127
  Serious: Yes (Hospitalization, Other)
  Sender: FDA-Public Use
  Company Number: BR-ALEXION-A201707553

PATIENT
  Age: 46 Year
  Sex: Male

DRUGS (3)
  1. SOLIRIS [Suspect]
     Active Substance: ECULIZUMAB
     Dosage: 900 MG, Q2W
     Route: 065
     Dates: end: 20170116
  2. SOLIRIS [Suspect]
     Active Substance: ECULIZUMAB
     Indication: PAROXYSMAL NOCTURNAL HAEMOGLOBINURIA
     Dosage: 600 MG, UNK
     Route: 042
     Dates: start: 20150928, end: 20151019
  3. SOLIRIS [Suspect]
     Active Substance: ECULIZUMAB
     Dosage: 900 MG, EVERY 10 DAYS
     Route: 042
     Dates: start: 20170126

REACTIONS (21)
  - Blood lactate dehydrogenase increased [Unknown]
  - Red cell distribution width increased [Unknown]
  - Gamma-glutamyltransferase increased [Unknown]
  - Macrocytosis [Unknown]
  - Urobilinogen urine increased [Unknown]
  - Haematocrit decreased [Unknown]
  - Neutrophil count decreased [Unknown]
  - Crystal urine present [Unknown]
  - Thrombocytopenia [Unknown]
  - Reticulocyte count increased [Unknown]
  - Mean cell volume increased [Unknown]
  - Anisocytosis [Unknown]
  - Bacterial test positive [Unknown]
  - Red blood cell count decreased [Unknown]
  - White blood cell count decreased [Unknown]
  - Bilirubin urine present [Unknown]
  - Urinary tract infection [Recovered/Resolved]
  - Haemoglobin decreased [Unknown]
  - Inappropriate schedule of drug administration [Not Recovered/Not Resolved]
  - Urine analysis abnormal [Unknown]
  - Mean cell haemoglobin increased [Unknown]

NARRATIVE: CASE EVENT DATE: 20170126
